FAERS Safety Report 24370236 (Version 1)
Quarter: 2024Q3

REPORT INFORMATION
  Report Type: Report from Study
  Country: US (occurrence: US)
  Receive Date: 20240927
  Receipt Date: 20240927
  Transmission Date: 20241017
  Serious: No
  Sender: ROCHE
  Company Number: US-ROCHE-3538070

PATIENT
  Age: 70 Year
  Sex: Male

DRUGS (20)
  1. LUCENTIS [Suspect]
     Active Substance: RANIBIZUMAB
     Indication: Diabetic retinopathy
     Dosage: 0.5 MG/0.05 ML
     Route: 050
  2. LUCENTIS [Suspect]
     Active Substance: RANIBIZUMAB
     Indication: Retinal vein occlusion
  3. LUCENTIS [Suspect]
     Active Substance: RANIBIZUMAB
     Indication: Macular oedema
  4. LUCENTIS [Suspect]
     Active Substance: RANIBIZUMAB
     Indication: Benign neoplasm of choroid
  5. AVASTIN [Suspect]
     Active Substance: BEVACIZUMAB
     Indication: Diabetic retinopathy
     Route: 065
  6. AVASTIN [Suspect]
     Active Substance: BEVACIZUMAB
     Indication: Retinal vein occlusion
  7. AVASTIN [Suspect]
     Active Substance: BEVACIZUMAB
     Indication: Macular oedema
  8. AVASTIN [Suspect]
     Active Substance: BEVACIZUMAB
     Indication: Benign neoplasm of choroid
  9. VALSARTAN [Concomitant]
     Active Substance: VALSARTAN
  10. GABAPENTIN [Concomitant]
     Active Substance: GABAPENTIN
  11. METFORMIN HYDROCHLORIDE [Concomitant]
     Active Substance: METFORMIN HYDROCHLORIDE
  12. ACEBUTOLOL [Concomitant]
     Active Substance: ACEBUTOLOL
  13. PIOGLITAZONE [Concomitant]
     Active Substance: PIOGLITAZONE
  14. JARDIANCE [Concomitant]
     Active Substance: EMPAGLIFLOZIN
  15. TADALAFIL [Concomitant]
     Active Substance: TADALAFIL
  16. ROSUVASTATIN [Concomitant]
     Active Substance: ROSUVASTATIN\ROSUVASTATIN CALCIUM
  17. ASPIRIN [Concomitant]
     Active Substance: ASPIRIN
  18. CEFDINIR [Concomitant]
     Active Substance: CEFDINIR
  19. TAMSULOSIN [Concomitant]
     Active Substance: TAMSULOSIN
  20. EYLEA [Concomitant]
     Active Substance: AFLIBERCEPT

REACTIONS (2)
  - Off label use [Unknown]
  - No adverse event [Unknown]
